FAERS Safety Report 9338750 (Version 2)
Quarter: 2013Q2

REPORT INFORMATION
  Report Type: Spontaneous
  Country: US (occurrence: US)
  Receive Date: 20130610
  Receipt Date: 20130627
  Transmission Date: 20140414
  Serious: Yes (Death)
  Sender: FDA-Public Use
  Company Number: US-PFIZER INC-2013172666

PATIENT
  Age: 87 Year
  Sex: Male
  Weight: 72.56 kg

DRUGS (1)
  1. VFEND [Suspect]
     Dosage: 250 MG, 2X/DAY

REACTIONS (2)
  - Cardiac arrest [Fatal]
  - Condition aggravated [Fatal]
